FAERS Safety Report 4348167-8 (Version None)
Quarter: 2004Q1

REPORT INFORMATION
  Report Type: 
  Country: None (occurrence: None)
  Receive Date: 20040325
  Receipt Date: 20031205
  Transmission Date: 20041129
  Serious: No
  Sender: FDA-Public Use
  Company Number: USA031254082

PATIENT
  Age: 68 Year
  Sex: Female

DRUGS (6)
  1. FORTEO [Suspect]
     Indication: OSTEOPOROSIS
     Dates: start: 20030916, end: 20031201
  2. LEVOTHROID [Concomitant]
  3. SINGULAIR [Concomitant]
  4. ZYRTEC [Concomitant]
  5. PRILOSEC [Concomitant]
  6. ORTHO-EST (ESTROPIPATE) [Concomitant]

REACTIONS (1)
  - JOINT STIFFNESS [None]
